FAERS Safety Report 6334972-5 (Version None)
Quarter: 2009Q3

REPORT INFORMATION
  Report Type: 
  Country: None (occurrence: None)
  Receive Date: 20090831
  Receipt Date: 20090820
  Transmission Date: 20100115
  Serious: No
  Sender: FDA-Public Use
  Company Number: US-BAYER-200930584NA

PATIENT
  Age: 58 Year
  Sex: Female
  Weight: 215 kg

DRUGS (1)
  1. ULTRAVIST 300 [Suspect]
     Indication: COMPUTERISED TOMOGRAM ABDOMEN
     Dosage: TOTAL DAILY DOSE: 120 ML  UNIT DOSE: 150 ML
     Route: 042
     Dates: start: 20090820, end: 20090820

REACTIONS (7)
  - DYSPNOEA [None]
  - EYE SWELLING [None]
  - LACRIMATION INCREASED [None]
  - NASAL CONGESTION [None]
  - OCULAR HYPERAEMIA [None]
  - SNEEZING [None]
  - WHEEZING [None]
